FAERS Safety Report 24702522 (Version 1)
Quarter: 2024Q4

REPORT INFORMATION
  Report Type: Spontaneous
  Country: CO (occurrence: CO)
  Receive Date: 20241205
  Receipt Date: 20241205
  Transmission Date: 20250115
  Serious: Yes (Hospitalization)
  Sender: BIOMARIN
  Company Number: CO-BIOMARINAP-CO-2024-160251

PATIENT

DRUGS (1)
  1. NAGLAZYME [Suspect]
     Active Substance: GALSULFASE
     Indication: Mucopolysaccharidosis VI
     Dosage: 13 MILLIGRAM, QW
     Route: 042
     Dates: start: 20230628

REACTIONS (3)
  - Developmental hip dysplasia [Recovering/Resolving]
  - Anaemia [Recovering/Resolving]
  - Procedural vomiting [Unknown]

NARRATIVE: CASE EVENT DATE: 20240821
